FAERS Safety Report 8367086-3 (Version None)
Quarter: 2012Q2

REPORT INFORMATION
  Report Type: 
  Country: None (occurrence: None)
  Receive Date: 20120517
  Receipt Date: 20120511
  Transmission Date: 20120825
  Serious: Yes (Other)
  Sender: FDA-Public Use
  Company Number: CH-ABBOTT-12P-151-0924974-00

PATIENT
  Age: 44 Year
  Sex: Male

DRUGS (6)
  1. ATORVASTATIN CALCIUM [Concomitant]
     Indication: HYPERLIPIDAEMIA
     Route: 048
  2. ETORICOXIB [Concomitant]
     Indication: ANKYLOSING SPONDYLITIS
     Route: 048
     Dates: start: 20100316
  3. SIMPONI [Suspect]
     Indication: ANKYLOSING SPONDYLITIS
     Route: 058
     Dates: start: 20110901
  4. LEFLUNOMIDE [Concomitant]
     Indication: PSORIATIC ARTHROPATHY
     Dates: start: 20100531, end: 20100825
  5. HUMIRA [Suspect]
     Indication: ANKYLOSING SPONDYLITIS
     Route: 058
     Dates: start: 20100315, end: 20100825
  6. ENBREL [Suspect]
     Indication: ANKYLOSING SPONDYLITIS
     Route: 058
     Dates: start: 20100825, end: 20110901

REACTIONS (1)
  - ALOPECIA UNIVERSALIS [None]
